FAERS Safety Report 5415594-7 (Version None)
Quarter: 2007Q3

REPORT INFORMATION
  Report Type: 
  Country: None (occurrence: None)
  Receive Date: 20070815
  Receipt Date: 20070801
  Transmission Date: 20080115
  Serious: Yes (Other)
  Sender: FDA-Public Use
  Company Number: FR-ROCHE-507451

PATIENT
  Age: 48 Year
  Sex: Female

DRUGS (7)
  1. COPEGUS [Suspect]
     Indication: HEPATITIS C
     Route: 065
     Dates: start: 20061001, end: 20070716
  2. COPEGUS [Suspect]
     Route: 065
     Dates: start: 20070717
  3. PEGASYS [Suspect]
     Indication: HEPATITIS C
     Route: 065
     Dates: start: 20061001
  4. NEORECORMON [Suspect]
     Indication: HEPATITIS
     Dosage: FORM: INJECTABLE SOLUTION. PFS.
     Route: 058
     Dates: start: 20061215, end: 20070202
  5. NEORECORMON [Suspect]
     Dosage: PFS.
     Route: 058
     Dates: start: 20070310, end: 20070424
  6. NEORECORMON [Suspect]
     Dosage: PFS.
     Route: 058
     Dates: start: 20070427, end: 20070511
  7. NEORECORMON [Suspect]
     Dosage: PFS.
     Route: 058
     Dates: start: 20070525, end: 20070720

REACTIONS (2)
  - ANAEMIA [None]
  - DRUG EFFECT DECREASED [None]
